FAERS Safety Report 5345883-6 (Version None)
Quarter: 2007Q2

REPORT INFORMATION
  Report Type: 
  Country: None (occurrence: None)
  Receive Date: 20070605
  Receipt Date: 20070524
  Transmission Date: 20071010
  Serious: Yes (Hospitalization)
  Sender: FDA-Public Use
  Company Number: FR-ROCHE-493129

PATIENT
  Age: 17 Year
  Sex: Male

DRUGS (4)
  1. ROACCUTANE [Suspect]
     Indication: DRUG USE FOR UNKNOWN INDICATION
     Dosage: START DATE REPORTED AS END OF DECEMBER
     Route: 048
     Dates: start: 20061225, end: 20070228
  2. ROACCUTANE [Suspect]
     Dosage: STOP DATE REPORTED WAS END OF DECEMBER 2006
     Route: 048
     Dates: start: 20060915, end: 20061225
  3. CORYZALIA [Concomitant]
     Indication: VIRAL RHINITIS
     Dosage: REPORTED AS 3 DOSES QD
     Route: 048
     Dates: start: 20070213, end: 20070215
  4. CANNABIS [Concomitant]

REACTIONS (2)
  - ABDOMINAL PAIN [None]
  - VASCULAR PURPURA [None]
